FAERS Safety Report 17517421 (Version 1)
Quarter: 2020Q1

REPORT INFORMATION
  Report Type: Spontaneous
  Country: US (occurrence: US)
  Receive Date: 20200309
  Receipt Date: 20200309
  Transmission Date: 20200409
  Serious: Yes (Hospitalization)
  Sender: FDA-Public Use
  Company Number: None

PATIENT
  Age: 58 Year
  Sex: Female
  Weight: 58.5 kg

DRUGS (3)
  1. OLMESARTAN 20MG [Concomitant]
     Active Substance: OLMESARTAN
  2. PEPCID [Concomitant]
     Active Substance: FAMOTIDINE
  3. ZANTAC [Suspect]
     Active Substance: RANITIDINE HYDROCHLORIDE
     Indication: DYSPEPSIA
     Route: 048
     Dates: start: 20180828, end: 20200101

REACTIONS (2)
  - Ovarian cyst [None]
  - Salpingo-oophorectomy bilateral [None]

NARRATIVE: CASE EVENT DATE: 20191128
